FAERS Safety Report 19701336 (Version 5)
Quarter: 2023Q2

REPORT INFORMATION
  Report Type: Report from Study
  Country: CO (occurrence: CO)
  Receive Date: 20210813
  Receipt Date: 20230601
  Transmission Date: 20230722
  Serious: Yes (Other)
  Sender: FDA-Public Use
  Company Number: CO-TAKEDA-CO202034574

PATIENT
  Age: 89 Year
  Sex: Female
  Weight: 57 kg

DRUGS (1)
  1. HUMAN IMMUNOGLOBULIN G\HYALURONIDASE RECOMBINANT HUMAN [Suspect]
     Active Substance: HUMAN IMMUNOGLOBULIN G\HYALURONIDASE RECOMBINANT HUMAN
     Indication: Primary immunodeficiency syndrome
     Dosage: 30 GRAM, MONTHLY
     Route: 058
     Dates: start: 20190725

REACTIONS (14)
  - Pelvic fracture [Not Recovered/Not Resolved]
  - Bone fissure [Not Recovered/Not Resolved]
  - Bedridden [Recovering/Resolving]
  - Fall [Not Recovered/Not Resolved]
  - Infusion site rash [Recovered/Resolved]
  - Gait disturbance [Recovering/Resolving]
  - Eschar [Not Recovered/Not Resolved]
  - Vertigo [Unknown]
  - Balance disorder [Unknown]
  - Infusion site pruritus [Recovered/Resolved]
  - Device infusion issue [Recovered/Resolved]
  - Product availability issue [Unknown]
  - Treatment noncompliance [Unknown]
  - Product use issue [Unknown]

NARRATIVE: CASE EVENT DATE: 20201013
